FAERS Safety Report 9486531 (Version 1)
Quarter: 2013Q3

REPORT INFORMATION
  Report Type: Spontaneous
  Country: US (occurrence: None)
  Receive Date: 20130827
  Receipt Date: 20130827
  Transmission Date: 20140515
  Serious: No
  Sender: FDA-Public Use
  Company Number: None

PATIENT
  Age: 53 Year
  Sex: Female
  Weight: 86.18 kg

DRUGS (1)
  1. AMLODIPINE BESYLATE 5 MG TEVA PHARMACEUTICALS, [Suspect]
     Indication: HYPERTENSION
     Route: 048
     Dates: start: 20130715, end: 20130830

REACTIONS (8)
  - Blood pressure increased [None]
  - Dry mouth [None]
  - Lip dry [None]
  - Tongue discolouration [None]
  - Glossodynia [None]
  - Palpitations [None]
  - Tremor [None]
  - Impaired driving ability [None]
